FAERS Safety Report 7365404-6 (Version None)
Quarter: 2011Q1

REPORT INFORMATION
  Report Type: 
  Country: None (occurrence: None)
  Receive Date: 20110322
  Receipt Date: 20110317
  Transmission Date: 20110831
  Serious: No
  Sender: FDA-Public Use
  Company Number: US-BIOGENIDEC-2011BI010132

PATIENT
  Age: 55 Year
  Sex: Female

DRUGS (2)
  1. AVONEX [Suspect]
     Indication: MULTIPLE SCLEROSIS
     Route: 030
     Dates: start: 20080804
  2. AVONEX [Suspect]
     Route: 030
     Dates: start: 20010508, end: 20071207

REACTIONS (2)
  - CONFUSIONAL STATE [None]
  - INFLUENZA LIKE ILLNESS [None]
